FAERS Safety Report 10844314 (Version 2)
Quarter: 2015Q1

REPORT INFORMATION
  Report Type: Report from Study
  Country: CO (occurrence: CO)
  Receive Date: 20150220
  Receipt Date: 20150320
  Transmission Date: 20150721
  Serious: Yes (Disabling)
  Sender: FDA-Public Use
  Company Number: CO-BRISTOL-MYERS SQUIBB COMPANY-BMS-2015-010395

PATIENT
  Sex: Male
  Weight: 60 kg

DRUGS (2)
  1. CETUXIMAB [Suspect]
     Active Substance: CETUXIMAB
     Indication: HEAD AND NECK CANCER
     Dosage: 400 MG, QWK
     Route: 042
     Dates: start: 20141027
  2. OXYCODONE [Concomitant]
     Active Substance: OXYCODONE
     Indication: PAIN
     Route: 065

REACTIONS (2)
  - Diplopia [Unknown]
  - Paralysis [Unknown]
